FAERS Safety Report 7177196-4 (Version None)
Quarter: 2010Q4

REPORT INFORMATION
  Report Type: 
  Country: None (occurrence: None)
  Receive Date: 20101207
  Receipt Date: 20101122
  Transmission Date: 20110411
  Serious: Yes (Disabling)
  Sender: FDA-Public Use
  Company Number: TUK2010A00310

PATIENT
  Age: 50 Year
  Sex: Male

DRUGS (12)
  1. ACTOS [Suspect]
     Indication: PRODUCT USED FOR UNKNOWN INDICATION
     Dosage: ORAL
     Route: 048
     Dates: start: 20101019, end: 20101105
  2. ASPIRIN [Concomitant]
  3. ATORVASTATIN CALCIUM [Concomitant]
  4. CELLCEPT [Concomitant]
  5. ENALAPRIL [Concomitant]
  6. GLICLAZIDE [Concomitant]
  7. ISONIAZID [Concomitant]
  8. METOPROLOL [Concomitant]
  9. NIFEDIPINE [Concomitant]
  10. PROGRAF [Concomitant]
  11. PYRIDOXINE HCL [Concomitant]
  12. RANITIDINE [Concomitant]

REACTIONS (3)
  - DIZZINESS [None]
  - HEADACHE [None]
  - LETHARGY [None]
